FAERS Safety Report 6306381-6 (Version None)
Quarter: 2009Q3

REPORT INFORMATION
  Report Type: 
  Country: None (occurrence: None)
  Receive Date: 20090812
  Receipt Date: 20090804
  Transmission Date: 20100115
  Serious: Yes (Other)
  Sender: FDA-Public Use
  Company Number: US-ELI_LILLY_AND_COMPANY-US200907001193

PATIENT
  Sex: Male

DRUGS (7)
  1. BYETTA [Suspect]
     Indication: TYPE 2 DIABETES MELLITUS
     Dosage: 5 UG, 2/D
     Route: 058
     Dates: start: 20090414, end: 20090703
  2. GLUCOPHAGE [Concomitant]
     Indication: TYPE 2 DIABETES MELLITUS
     Dosage: 1700 MG, 2/D
     Route: 065
     Dates: end: 20090701
  3. PRECOSE [Concomitant]
     Dosage: 50 MG, 3/D
     Route: 065
     Dates: start: 20090319, end: 20090703
  4. ZETIA [Concomitant]
     Dosage: 10 MG, DAILY (1/D)
     Route: 065
  5. AMARYL [Concomitant]
     Dosage: 4 MG, 2/D
     Route: 048
     Dates: start: 20070101
  6. LEVEMIR [Concomitant]
     Dosage: 25 U, DAILY (1/D)
     Route: 065
     Dates: start: 20070101
  7. ASPIRIN [Concomitant]
     Dosage: 162 MG, DAILY (1/D)
     Route: 065

REACTIONS (3)
  - HEPATIC ENZYME INCREASED [None]
  - OFF LABEL USE [None]
  - PANCREATITIS [None]
